FAERS Safety Report 9730257 (Version 1)
Quarter: 2013Q4

REPORT INFORMATION
  Report Type: Spontaneous
  Country: US (occurrence: US)
  Receive Date: 20131204
  Receipt Date: 20131204
  Transmission Date: 20140711
  Serious: Yes (Hospitalization)
  Sender: FDA-Public Use
  Company Number: US-AMGEN-USASP2013085056

PATIENT
  Age: 67 Year
  Sex: Female

DRUGS (2)
  1. ENBREL [Suspect]
     Indication: RHEUMATOID ARTHRITIS
     Dosage: 50 MG, QWK
     Route: 065
     Dates: start: 1999
  2. METHOTREXATE [Concomitant]
     Dosage: 4 PILLS, 2.5MG , WEEKLY

REACTIONS (7)
  - Knee arthroplasty [Recovered/Resolved]
  - Vomiting [Recovered/Resolved]
  - Arthralgia [Recovered/Resolved]
  - Joint swelling [Recovered/Resolved]
  - Paranasal sinus hypersecretion [Recovered/Resolved]
  - Productive cough [Recovered/Resolved]
  - Increased upper airway secretion [Recovered/Resolved]
